FAERS Safety Report 5643869-5 (Version None)
Quarter: 2008Q1

REPORT INFORMATION
  Report Type: 
  Country: None (occurrence: None)
  Receive Date: 20080226
  Receipt Date: 20080211
  Transmission Date: 20080703
  Serious: Yes (Death, Hospitalization, Other)
  Sender: FDA-Public Use
  Company Number: 024150

PATIENT
  Age: 66 Year
  Sex: Male

DRUGS (7)
  1. METHYLPREDNISOLONE [Suspect]
     Dosage: 500 MG, INTRAVENOUS
     Route: 042
  2. CYCLOSPORINE [Suspect]
     Dosage: 150 MG,; 30 MG, INCREASED TO 60 MG
  3. PREDNISONE TAB [Concomitant]
  4. MYCOFENOLATE [Concomitant]
  5. ALLOPURINOL [Concomitant]
  6. INSULIN (INSULIN) [Concomitant]
  7. IMURAN [Concomitant]

REACTIONS (19)
  - CARDIAC FAILURE CONGESTIVE [None]
  - CHRONIC OBSTRUCTIVE PULMONARY DISEASE [None]
  - DIABETES MELLITUS [None]
  - DIABETIC NEUROPATHY [None]
  - GAIT DISTURBANCE [None]
  - GOUT [None]
  - GRIP STRENGTH DECREASED [None]
  - HAEMODIALYSIS [None]
  - HYPERLIPIDAEMIA [None]
  - HYPOREFLEXIA [None]
  - MOBILITY DECREASED [None]
  - MYOPATHY [None]
  - OLIGURIA [None]
  - PNEUMONIA [None]
  - RESPIRATORY FAILURE [None]
  - RHABDOMYOLYSIS [None]
  - SEPTIC SHOCK [None]
  - SLEEP APNOEA SYNDROME [None]
  - WEIGHT DECREASED [None]
